FAERS Safety Report 7793852-9 (Version None)
Quarter: 2011Q4

REPORT INFORMATION
  Report Type: 
  Country: None (occurrence: None)
  Receive Date: 20111004
  Receipt Date: 20110926
  Transmission Date: 20120403
  Serious: Yes (Hospitalization)
  Sender: FDA-Public Use
  Company Number: US-BIOGENIDEC-2011BI032392

PATIENT
  Age: 46 Year
  Sex: Female

DRUGS (3)
  1. AVONEX [Concomitant]
     Indication: MULTIPLE SCLEROSIS
     Route: 030
  2. TYSABRI [Suspect]
     Indication: MULTIPLE SCLEROSIS
     Route: 042
     Dates: start: 20081006
  3. AVONEX [Concomitant]
     Route: 030
     Dates: start: 20000201

REACTIONS (3)
  - HYSTERECTOMY [None]
  - PELVIC ADHESIONS [None]
  - OVARIAN CYST [None]
